FAERS Safety Report 13350057 (Version 1)
Quarter: 2017Q1

REPORT INFORMATION
  Report Type: Spontaneous
  Country: IN (occurrence: IN)
  Receive Date: 20170320
  Receipt Date: 20170320
  Transmission Date: 20170429
  Serious: Yes (Death, Other)
  Sender: FDA-Public Use
  Company Number: IN-JNJFOC-20170317286

PATIENT

DRUGS (3)
  1. DOXORUBICIN HYDROCHLORIDE. [Suspect]
     Active Substance: DOXORUBICIN HYDROCHLORIDE
     Indication: METASTASES TO PERITONEUM
     Route: 065
  2. CISPLATIN. [Suspect]
     Active Substance: CISPLATIN
     Indication: METASTASES TO PERITONEUM
     Route: 065
  3. MITOMYCIN C [Suspect]
     Active Substance: MITOMYCIN
     Indication: METASTASES TO PERITONEUM
     Dosage: 10 MG/M2 IN FEMALES, 12.5 MG/M2 IN MALES
     Route: 065

REACTIONS (13)
  - Death [Fatal]
  - Pneumonia [Unknown]
  - Incorrect route of drug administration [Unknown]
  - Hypotension [Unknown]
  - Acute respiratory distress syndrome [Fatal]
  - Off label use [Unknown]
  - Pleural effusion [Unknown]
  - Neutropenia [Unknown]
  - Product use issue [Unknown]
  - Wound infection [Unknown]
  - Respiratory distress [Unknown]
  - Thrombocytopenia [Unknown]
  - Failure to anastomose [Unknown]
